FAERS Safety Report 13831706 (Version 1)
Quarter: 2017Q3

REPORT INFORMATION
  Report Type: Spontaneous
  Country: US (occurrence: US)
  Receive Date: 20170803
  Receipt Date: 20170803
  Transmission Date: 20171127
  Serious: No
  Sender: FDA-Public Use
  Company Number: US-ROCHE-673786

PATIENT
  Sex: Female
  Weight: 65.9 kg

DRUGS (4)
  1. VIACTIV [Concomitant]
     Active Substance: CALCIUM\VITAMIN D\VITAMIN K5
     Route: 065
  2. BONIVA [Suspect]
     Active Substance: IBANDRONATE SODIUM
     Indication: OSTEOPENIA
     Route: 048
     Dates: start: 2006, end: 20091127
  3. ACIPHEX [Concomitant]
     Active Substance: RABEPRAZOLE SODIUM
     Route: 065
  4. JANUMET [Concomitant]
     Active Substance: METFORMIN HYDROCHLORIDE\SITAGLIPTIN PHOSPHATE
     Route: 065

REACTIONS (1)
  - Bone density decreased [Unknown]
